FAERS Safety Report 5447711-7 (Version None)
Quarter: 2007Q3

REPORT INFORMATION
  Report Type: 
  Country: None (occurrence: None)
  Receive Date: 20070910
  Receipt Date: 20070830
  Transmission Date: 20080115
  Serious: Yes (Other)
  Sender: FDA-Public Use
  Company Number: US-ROCHE-514454

PATIENT
  Sex: Male

DRUGS (2)
  1. PEG-INTERFERON A-2A (RO 25-8310) [Suspect]
     Route: 065
     Dates: start: 20070614
  2. RIBAVIRIN [Suspect]
     Route: 065
     Dates: start: 20070614

REACTIONS (2)
  - EAR NEOPLASM [None]
  - YELLOW SKIN [None]
